FAERS Safety Report 16717190 (Version 2)
Quarter: 2019Q3

REPORT INFORMATION
  Report Type: Report from Study
  Country: US (occurrence: US)
  Receive Date: 20190819
  Receipt Date: 20190930
  Transmission Date: 20191005
  Serious: No
  Sender: FDA-Public Use
  Company Number: US-SHIRE-US201926336

PATIENT
  Sex: Female
  Weight: 81.63 kg

DRUGS (2)
  1. XIIDRA [Suspect]
     Active Substance: LIFITEGRAST
     Dosage: 1 GTT DROPS, 2X/DAY:BID
     Route: 047
     Dates: start: 201908
  2. XIIDRA [Suspect]
     Active Substance: LIFITEGRAST
     Indication: DRY EYE
     Dosage: UNK
     Route: 047

REACTIONS (3)
  - Product dose omission [Not Recovered/Not Resolved]
  - Unevaluable event [Not Recovered/Not Resolved]
  - Memory impairment [Not Recovered/Not Resolved]

NARRATIVE: CASE EVENT DATE: 2019
